FAERS Safety Report 13859578 (Version 2)
Quarter: 2017Q3

REPORT INFORMATION
  Report Type: Spontaneous
  Country: JP (occurrence: JP)
  Receive Date: 20170811
  Receipt Date: 20170913
  Transmission Date: 20171127
  Serious: Yes (Life-Threatening)
  Sender: FDA-Public Use
  Company Number: JP-JNJFOC-20170810144

PATIENT
  Age: 69 Year
  Sex: Female
  Weight: 59 kg

DRUGS (6)
  1. POSTERISAN [Concomitant]
     Active Substance: LIDOCAINE
     Dosage: ADEQUATE DOSE
     Route: 062
     Dates: start: 20151027, end: 20170213
  2. NOVORAPID [Concomitant]
     Active Substance: INSULIN ASPART
     Indication: TYPE 2 DIABETES MELLITUS
     Dosage: IN 2 DIVIDED DOSES, STARTED BEFORE 2009
     Route: 051
     Dates: end: 20170213
  3. LAMISIL [Concomitant]
     Active Substance: TERBINAFINE HYDROCHLORIDE
     Dosage: ADEQUATE DOSE
     Route: 062
     Dates: start: 20120227, end: 20170213
  4. CANAGLU [Suspect]
     Active Substance: CANAGLIFLOZIN
     Indication: TYPE 2 DIABETES MELLITUS
     Route: 048
     Dates: start: 20160225, end: 20170213
  5. CRESTOR [Concomitant]
     Active Substance: ROSUVASTATIN CALCIUM
     Route: 048
     Dates: start: 20121119, end: 20170213
  6. EQUA [Concomitant]
     Active Substance: VILDAGLIPTIN
     Indication: TYPE 2 DIABETES MELLITUS
     Route: 048
     Dates: start: 20150115, end: 20170213

REACTIONS (1)
  - Lung neoplasm malignant [Not Recovered/Not Resolved]

NARRATIVE: CASE EVENT DATE: 20161129
